FAERS Safety Report 10978761 (Version 1)
Quarter: 2015Q1

REPORT INFORMATION
  Report Type: Spontaneous
  Country: JP (occurrence: None)
  Receive Date: 20150331
  Receipt Date: 20150331
  Transmission Date: 20150721
  Serious: Yes (Hospitalization)
  Sender: FDA-Public Use
  Company Number: 2014FE02488

PATIENT
  Age: 64 Year
  Sex: Male
  Weight: 90 kg

DRUGS (13)
  1. PURSENNIDE (SENNOSIDE A+B CALCIUM) [Concomitant]
  2. TAKEPRON (LANSOPRAZOLE) [Concomitant]
     Active Substance: LANSOPRAZOLE
  3. OXYCONTIN [Concomitant]
     Active Substance: OXYCODONE HYDROCHLORIDE
  4. GONAX [Suspect]
     Active Substance: DEGARELIX
     Indication: PROSTATE CANCER
     Route: 058
     Dates: start: 201309, end: 20140813
  5. MUCOSTA (REBAMIPIDE) [Concomitant]
  6. NAIXAN (NAPROXEN) [Concomitant]
  7. TENORMIN [Concomitant]
     Active Substance: ATENOLOL
  8. XTANDI [Suspect]
     Active Substance: ENZALUTAMIDE
     Indication: PROSTATE CANCER
     Dosage: 1 TIME DAILY, FORMULATION: CAPSULE
     Route: 048
     Dates: start: 20140618, end: 20140623
  9. HARNAL (TAMSULOSIN HYDROCHLORIDE) [Concomitant]
  10. MYSLEE (ZOLPIDEM TARTRATE) [Concomitant]
  11. PURSENNIDE (SENNOSIDE A+B CALCIUM) [Concomitant]
  12. LUPRAC (TORASEMIDE) [Concomitant]
     Active Substance: TORSEMIDE
  13. WARFARIN POTASSIUM [Concomitant]
     Active Substance: WARFARIN POTASSIUM

REACTIONS (3)
  - Intentional product misuse [None]
  - Haematuria [None]
  - Activated partial thromboplastin time prolonged [None]
